FAERS Safety Report 17101570 (Version 1)
Quarter: 2019Q4

REPORT INFORMATION
  Report Type: Spontaneous
  Country: ES (occurrence: ES)
  Receive Date: 20191202
  Receipt Date: 20191202
  Transmission Date: 20200122
  Serious: Yes (Hospitalization, Other)
  Sender: FDA-Public Use
  Company Number: ES-PCCINC-2019-PEL-000402

PATIENT

DRUGS (14)
  1. PROPOFOL. [Concomitant]
     Active Substance: PROPOFOL
     Indication: INDUCTION OF ANAESTHESIA
     Dosage: 200 MILLIGRAM
     Route: 065
  2. MANNITOL. [Concomitant]
     Active Substance: MANNITOL
     Indication: PRODUCT USED FOR UNKNOWN INDICATION
     Dosage: 40 GRAM
     Route: 065
  3. PARACETAMOL [Concomitant]
     Active Substance: ACETAMINOPHEN
     Indication: PAIN
     Dosage: 750 MILLIGRAM
     Route: 065
  4. ROCURONIUM [Concomitant]
     Active Substance: ROCURONIUM BROMIDE
     Indication: HYPOTONIA
     Dosage: UNK
     Route: 065
  5. MIDAZOLAM [Concomitant]
     Active Substance: MIDAZOLAM HYDROCHLORIDE
     Indication: PREMEDICATION
     Dosage: 2 MILLIGRAM
     Route: 042
  6. METAMIZOL                          /06276701/ [Concomitant]
     Active Substance: METAMIZOLE
     Indication: PAIN
     Dosage: 20 MILLIGRAM/KILOGRAM
     Route: 065
  7. RANITIDINE. [Concomitant]
     Active Substance: RANITIDINE
     Indication: PRODUCT USED FOR UNKNOWN INDICATION
     Dosage: 50 MILLIGRAM
     Route: 065
  8. TRANEXAMIC ACID. [Concomitant]
     Active Substance: TRANEXAMIC ACID
     Indication: PRODUCT USED FOR UNKNOWN INDICATION
     Dosage: 500 MILLIGRAM
     Route: 065
  9. PHENYLEPHRINE [Concomitant]
     Active Substance: PHENYLEPHRINE HYDROCHLORIDE
     Indication: PRODUCT USED FOR UNKNOWN INDICATION
     Dosage: 140 MICROGRAM
     Route: 065
  10. SEVOFLURANE. [Suspect]
     Active Substance: SEVOFLURANE
     Indication: MAINTENANCE OF ANAESTHESIA
     Dosage: 2% TO 3%
  11. DEXAMETHASONE                      /00016002/ [Concomitant]
     Active Substance: DEXAMETHASONE SODIUM PHOSPHATE
     Indication: PRODUCT USED FOR UNKNOWN INDICATION
     Dosage: 12 MILLIGRAM
     Route: 065
  12. CEFAZOLIN [Concomitant]
     Active Substance: CEFAZOLIN
     Indication: PRODUCT USED FOR UNKNOWN INDICATION
     Dosage: 1.5 GRAM
     Route: 065
  13. FENTANYL. [Concomitant]
     Active Substance: FENTANYL
     Indication: ANALGESIC THERAPY
     Dosage: 3 MICROGRAM/KILOGRAM
     Route: 065
  14. ESMOLOL [Concomitant]
     Active Substance: ESMOLOL HYDROCHLORIDE
     Indication: PRODUCT USED FOR UNKNOWN INDICATION
     Dosage: LOADING DOSE OF 25 MG, MAINTAINED WITH 5  MICROGRAM/KG/MIN
     Route: 065

REACTIONS (3)
  - Acute hepatic failure [Recovered/Resolved]
  - Coagulopathy [Recovered/Resolved]
  - Thrombocytopenia [Recovered/Resolved]
